FAERS Safety Report 23486571 (Version 1)
Quarter: 2024Q1

REPORT INFORMATION
  Report Type: Spontaneous
  Country: US (occurrence: None)
  Receive Date: 20240205
  Receipt Date: 20240205
  Transmission Date: 20240409
  Serious: Yes (Hospitalization)
  Sender: FDA-Public Use
  Company Number: None

PATIENT
  Sex: Female

DRUGS (18)
  1. MYCOPHENOLATE MOFETIL [Suspect]
     Active Substance: MYCOPHENOLATE MOFETIL
     Indication: Renal transplant
     Dosage: FREQUENCY : TWICE A DAY;?
     Route: 048
     Dates: start: 20210713
  2. ALLOPURINOL [Concomitant]
     Active Substance: ALLOPURINOL
  3. AMLODIPINE [Concomitant]
     Active Substance: AMLODIPINE BESYLATE
  4. ATENOLOL [Concomitant]
     Active Substance: ATENOLOL
  5. CALITRIOL [Concomitant]
  6. CALCIUM GLUC [Concomitant]
  7. CICLOPIROX SOL [Concomitant]
  8. CLONIDINE DIS [Concomitant]
  9. CYCLOSPORINE [Concomitant]
     Active Substance: CYCLOSPORINE
  10. CYCLOSPORINE [Concomitant]
     Active Substance: CYCLOSPORINE
  11. CYCLOSPORINE [Concomitant]
     Active Substance: CYCLOSPORINE
  12. LISINOPRIL [Concomitant]
     Active Substance: LISINOPRIL
  13. MAGNESIUM OXIDE [Concomitant]
     Active Substance: MAGNESIUM OXIDE
  14. NIFEDIPINE [Concomitant]
     Active Substance: NIFEDIPINE
  15. PREDNISONE [Concomitant]
     Active Substance: PREDNISONE
  16. TERBINAFINE CRE [Concomitant]
  17. VITAMIN C [Concomitant]
     Active Substance: ASCORBIC ACID
  18. VITAMIN D3 [Concomitant]
     Active Substance: CHOLECALCIFEROL

REACTIONS (2)
  - Emergency care [None]
  - Ill-defined disorder [None]
